FAERS Safety Report 8956541 (Version 3)
Quarter: 2013Q1

REPORT INFORMATION
  Report Type: Spontaneous
  Country: US (occurrence: US)
  Receive Date: 20121210
  Receipt Date: 20130130
  Transmission Date: 20140127
  Serious: Yes (Other)
  Sender: FDA-Public Use
  Company Number: US-JNJFOC-20121200970

PATIENT
  Age: 32 None
  Sex: Male
  Weight: 76.66 kg

DRUGS (1)
  1. REMICADE [Suspect]
     Indication: CROHN^S DISEASE
     Route: 042
     Dates: start: 1999

REACTIONS (2)
  - Nuclear magnetic resonance imaging brain abnormal [Unknown]
  - Headache [Unknown]
